FAERS Safety Report 4333499-X (Version None)
Quarter: 2004Q2

REPORT INFORMATION
  Report Type: 
  Country: None (occurrence: None)
  Receive Date: 20040401
  Receipt Date: 20040319
  Transmission Date: 20050107
  Serious: Yes (Other)
  Sender: FDA-Public Use
  Company Number: 2004019342

PATIENT
  Age: 18 Year
  Sex: Female

DRUGS (4)
  1. BENADRYL [Suspect]
     Indication: URTICARIA
     Dosage: INTRAVENOUS
     Route: 042
     Dates: start: 20020101, end: 20040101
  2. EPINEPHRINE [Suspect]
     Indication: URTICARIA
     Dates: start: 20040101, end: 20040101
  3. ALL OTHER THERAPEUTIC PRODUCTS [Suspect]
     Indication: URTICARIA
     Dates: start: 20040101, end: 20040101
  4. DIPHENHYDRAMINE HCL [Concomitant]

REACTIONS (3)
  - DRUG HYPERSENSITIVITY [None]
  - OROPHARYNGEAL SWELLING [None]
  - URTICARIA [None]
